FAERS Safety Report 8335805-8 (Version None)
Quarter: 2012Q2

REPORT INFORMATION
  Report Type: 
  Country: None (occurrence: None)
  Receive Date: 20120504
  Receipt Date: 20110621
  Transmission Date: 20120825
  Serious: Yes (Life-Threatening, Hospitalization, Disabling)
  Sender: FDA-Public Use
  Company Number: US-BAYER-200714849NA

PATIENT
  Age: 23 Year
  Sex: Female
  Weight: 60 kg

DRUGS (8)
  1. YAZ [Suspect]
     Indication: ORAL CONTRACEPTION
     Dosage: 1 TABLET
     Route: 048
     Dates: start: 20070701, end: 20070912
  2. FISH OIL [Concomitant]
     Dosage: 1 G, TID
  3. TOPROL-XL [Concomitant]
     Indication: LEFT VENTRICULAR DYSFUNCTION
     Dosage: 25 MG, QD
  4. INSULIN [Concomitant]
     Indication: HYPERGLYCAEMIA
  5. METOPROLOL TARTRATE [Concomitant]
     Dosage: 25 MG, QD
  6. AMANTADINE HCL [Concomitant]
     Dosage: 100 MG, QD
  7. PROPOFOL [Concomitant]
     Indication: MEDICAL INDUCTION OF COMA
  8. ALCOHOL [Concomitant]

REACTIONS (12)
  - CONVULSION [None]
  - MEMORY IMPAIRMENT [None]
  - VENTRICULAR FIBRILLATION [None]
  - MUSCLE SPASTICITY [None]
  - PNEUMONIA ASPIRATION [None]
  - BALANCE DISORDER [None]
  - VISUAL IMPAIRMENT [None]
  - CARDIAC ARREST [None]
  - MYOCLONUS [None]
  - MOTOR DYSFUNCTION [None]
  - HYPOXIC-ISCHAEMIC ENCEPHALOPATHY [None]
  - MUSCULAR WEAKNESS [None]
